FAERS Safety Report 6271977-7 (Version None)
Quarter: 2009Q3

REPORT INFORMATION
  Report Type: 
  Country: None (occurrence: None)
  Receive Date: 20090717
  Receipt Date: 20090707
  Transmission Date: 20100115
  Serious: Yes (Other)
  Sender: FDA-Public Use
  Company Number: CH-BAXTER-2009BH011277

PATIENT
  Age: 50 Year
  Sex: Female
  Weight: 72 kg

DRUGS (11)
  1. HOLOXAN BAXTER [Suspect]
     Indication: ANGIOSARCOMA
     Route: 041
     Dates: start: 20090519, end: 20090521
  2. UROMITEXAN BAXTER [Suspect]
     Indication: DRUG USE FOR UNKNOWN INDICATION
     Route: 041
     Dates: start: 20090519, end: 20090521
  3. ADRIBLASTIN [Suspect]
     Indication: ANGIOSARCOMA
     Route: 041
     Dates: start: 20090519, end: 20090519
  4. MORPHINE [Concomitant]
     Indication: DRUG USE FOR UNKNOWN INDICATION
     Route: 048
  5. KONAKION [Concomitant]
     Indication: DRUG USE FOR UNKNOWN INDICATION
     Route: 048
  6. VANCOMYCIN [Concomitant]
     Indication: DRUG USE FOR UNKNOWN INDICATION
     Route: 041
  7. LOPRESOR [Concomitant]
     Indication: DRUG USE FOR UNKNOWN INDICATION
     Route: 048
  8. FOLVITE [Concomitant]
     Indication: DRUG USE FOR UNKNOWN INDICATION
     Route: 048
  9. ENALAPRIL MALEATE [Concomitant]
     Indication: DRUG USE FOR UNKNOWN INDICATION
     Route: 048
  10. LEXOTANIL [Concomitant]
     Indication: DRUG USE FOR UNKNOWN INDICATION
     Route: 048
  11. IPRATROPIUM BROMIDE W/SALBUTAMOL [Concomitant]
     Indication: DRUG USE FOR UNKNOWN INDICATION
     Route: 055

REACTIONS (2)
  - DERMATITIS BULLOUS [None]
  - SKIN TOXICITY [None]
